FAERS Safety Report 9837776 (Version 1)
Quarter: 2013Q4

REPORT INFORMATION
  Report Type: Spontaneous
  Country: US (occurrence: None)
  Receive Date: 20131203
  Receipt Date: 20131203
  Transmission Date: 20140711
  Serious: Yes (Disabling)
  Sender: FDA-Public Use
  Company Number: 1758924

PATIENT
  Age: 67 Year
  Sex: Female
  Weight: 83.92 kg

DRUGS (2)
  1. BUPIVACAINE HCL [Suspect]
     Indication: MYALGIA
     Dosage: UNKNOWN, ONCE, INJECTION AROUND MID
     Route: 050
     Dates: start: 20130103, end: 20130103
  2. CELESTONE [Suspect]
     Dosage: UNKNOWN, ONCE, INJECTION AROUND MID
     Route: 050
     Dates: start: 20130103, end: 20130103

REACTIONS (2)
  - Musculoskeletal stiffness [None]
  - Hypoaesthesia [None]
